FAERS Safety Report 6065243-2 (Version None)
Quarter: 2009Q1

REPORT INFORMATION
  Report Type: 
  Country: None (occurrence: None)
  Receive Date: 20090204
  Receipt Date: 20090127
  Transmission Date: 20090719
  Serious: Yes (Hospitalization)
  Sender: FDA-Public Use
  Company Number: PHHY2009JP02770

PATIENT
  Age: 88 Year
  Sex: Male

DRUGS (1)
  1. FAMVIR [Suspect]
     Indication: HERPES ZOSTER
     Dosage: 150MG DAILY
     Route: 048
     Dates: start: 20090109, end: 20090113

REACTIONS (2)
  - ENCEPHALOPATHY [None]
  - RHABDOMYOLYSIS [None]
